FAERS Safety Report 5729398-9 (Version None)
Quarter: 2008Q2

REPORT INFORMATION
  Report Type: 
  Country: None (occurrence: None)
  Receive Date: 20080506
  Receipt Date: 20080424
  Transmission Date: 20081010
  Serious: Yes (Other)
  Sender: FDA-Public Use
  Company Number: US-PFIZER INC-2008037773

PATIENT
  Sex: Female
  Weight: 71.7 kg

DRUGS (6)
  1. LYRICA [Suspect]
     Indication: FIBROMYALGIA
     Dosage: DAILY DOSE:225MG
     Route: 048
     Dates: start: 20080307, end: 20080408
  2. LYRICA [Suspect]
     Indication: SYSTEMIC LUPUS ERYTHEMATOSUS
  3. METHOTREXATE [Concomitant]
  4. METHYLPREDNISOLONE [Concomitant]
  5. ALL OTHER THERAPEUTIC PRODUCTS [Concomitant]
  6. ANALGESICS [Concomitant]

REACTIONS (2)
  - HYPERAESTHESIA [None]
  - NEURALGIA [None]
